FAERS Safety Report 18032892 (Version 1)
Quarter: 2020Q3

REPORT INFORMATION
  Report Type: Spontaneous
  Country: US (occurrence: US)
  Receive Date: 20200716
  Receipt Date: 20200716
  Transmission Date: 20201103
  Serious: No
  Sender: FDA-Public Use
  Company Number: US-GLAXOSMITHKLINE-US2020122700

PATIENT
  Age: 85 Year
  Sex: Male

DRUGS (1)
  1. VOLTAREN ARTHRITIS PAIN [Suspect]
     Active Substance: DICLOFENAC SODIUM
     Indication: ARTHRALGIA
     Dosage: UNK, BID
     Dates: start: 20200703, end: 20200706

REACTIONS (3)
  - Inappropriate schedule of product administration [Unknown]
  - Hypoaesthesia [Recovered/Resolved]
  - Off label use [Unknown]

NARRATIVE: CASE EVENT DATE: 20200703
